FAERS Safety Report 13942739 (Version 1)
Quarter: 2017Q3

REPORT INFORMATION
  Report Type: Spontaneous
  Country: US (occurrence: None)
  Receive Date: 20170907
  Receipt Date: 20170907
  Transmission Date: 20171127
  Serious: Yes (Hospitalization)
  Sender: FDA-Public Use
  Company Number: None

PATIENT
  Age: 11 Year
  Sex: Female
  Weight: 44.8 kg

DRUGS (9)
  1. ETOPOSIDE (VP-16) [Suspect]
     Active Substance: ETOPOSIDE
     Dates: end: 20140429
  2. METHOTREXATE. [Suspect]
     Active Substance: METHOTREXATE
     Dates: end: 20140418
  3. ONCASPAR [Suspect]
     Active Substance: PEGASPARGASE
     Dates: end: 20140216
  4. CYTARABINE. [Suspect]
     Active Substance: CYTARABINE
     Dates: end: 20140401
  5. CYCLOPHOSPHAMIDE. [Suspect]
     Active Substance: CYCLOPHOSPHAMIDE
     Dates: end: 20140429
  6. CLOLAR [Suspect]
     Active Substance: CLOFARABINE
     Dates: end: 20140429
  7. DAUNORUBICIN [Suspect]
     Active Substance: DAUNORUBICIN
     Dates: end: 20140220
  8. VINCRISTINE SULFATE. [Suspect]
     Active Substance: VINCRISTINE SULFATE
     Dates: end: 20140516
  9. PREDNISONE. [Suspect]
     Active Substance: PREDNISONE
     Dates: end: 20140312

REACTIONS (4)
  - Hypokalaemia [None]
  - Neuropathy peripheral [None]
  - Alanine aminotransferase increased [None]
  - Pain in extremity [None]

NARRATIVE: CASE EVENT DATE: 20140225
